FAERS Safety Report 9375854 (Version 3)
Quarter: 2014Q4

REPORT INFORMATION
  Report Type: Spontaneous
  Country: US (occurrence: US)
  Receive Date: 20130628
  Receipt Date: 20141020
  Transmission Date: 20150529
  Serious: Yes (Hospitalization)
  Sender: FDA-Public Use
  Company Number: US-009507513-1306USA013074

PATIENT
  Sex: Female

DRUGS (1)
  1. NUVARING [Suspect]
     Active Substance: ETHINYL ESTRADIOL\ETONOGESTREL
     Indication: CONTRACEPTION
     Dosage: UNK
     Route: 067
     Dates: start: 201102

REACTIONS (22)
  - Embolism venous [Unknown]
  - Major depression [Not Recovered/Not Resolved]
  - Thrombectomy [Unknown]
  - Anxiety [Unknown]
  - Anogenital warts [Unknown]
  - Pollakiuria [Unknown]
  - May-Thurner syndrome [Not Recovered/Not Resolved]
  - Migraine [Unknown]
  - Hypothyroidism [Unknown]
  - Oral surgery [Unknown]
  - Palpitations [Not Recovered/Not Resolved]
  - Venous stent insertion [Unknown]
  - Deep vein thrombosis [Unknown]
  - Gastrooesophageal reflux disease [Unknown]
  - Otitis media [Unknown]
  - Constipation [Unknown]
  - Pain [Not Recovered/Not Resolved]
  - Hypotension [Unknown]
  - Venous stent insertion [Unknown]
  - Intermittent claudication [Unknown]
  - Back pain [Not Recovered/Not Resolved]
  - Papilloma viral infection [Unknown]

NARRATIVE: CASE EVENT DATE: 20110526
